FAERS Safety Report 23481075 (Version 1)
Quarter: 2024Q1

REPORT INFORMATION
  Report Type: Spontaneous
  Country: US (occurrence: None)
  Receive Date: 20240202
  Receipt Date: 20240202
  Transmission Date: 20240409
  Serious: Yes (Death, Hospitalization)
  Sender: FDA-Public Use
  Company Number: None

PATIENT
  Age: 62 Year
  Sex: Female

DRUGS (1)
  1. AMBRISENTAN [Suspect]
     Active Substance: AMBRISENTAN
     Indication: Pulmonary hypertension
     Dosage: FREQUENCY : DAILY;?
     Route: 048
     Dates: start: 20180928, end: 20231108

REACTIONS (9)
  - Colon cancer [None]
  - Large intestinal obstruction [None]
  - Pneumonia aspiration [None]
  - Acute kidney injury [None]
  - Acute respiratory failure [None]
  - Hypervolaemia [None]
  - Metastases to lung [None]
  - Respiratory failure [None]
  - Pulmonary embolism [None]

NARRATIVE: CASE EVENT DATE: 20230920
